FAERS Safety Report 8351898-6 (Version None)
Quarter: 2012Q2

REPORT INFORMATION
  Report Type: 
  Country: None (occurrence: None)
  Receive Date: 20120511
  Receipt Date: 20120509
  Transmission Date: 20120825
  Serious: No
  Sender: FDA-Public Use
  Company Number: US-PFIZER INC-2012099753

PATIENT
  Sex: Male
  Weight: 136.05 kg

DRUGS (11)
  1. ALLOPURINOL [Concomitant]
     Indication: GOUT
     Dosage: 100 MG, UNK
  2. SUTENT [Suspect]
     Indication: METASTATIC RENAL CELL CARCINOMA
     Dosage: 50 MG, 1X/DAY, (CYCLE 4 WEEKS ON AND 2 WEEKS OFF)
     Route: 048
     Dates: start: 20120402, end: 20120429
  3. SUTENT [Suspect]
     Indication: RENAL CANCER
  4. ISOSORBIDE [Concomitant]
     Dosage: UNK
  5. POTASSIUM CHLORIDE [Concomitant]
     Dosage: 10 MEQ, UNK
  6. GABAPENTIN [Concomitant]
     Indication: DIABETES MELLITUS
     Dosage: 300 MG, 3X/DAY
  7. OMEPRAZOLE [Concomitant]
     Dosage: 10 MG, UNK
  8. PRAVASTATIN [Concomitant]
     Dosage: 40 MG, 1X/DAY
  9. ALLOPURINOL [Concomitant]
     Dosage: 200 MG, UNK
  10. ACETYLSALICYLIC ACID [Concomitant]
     Dosage: 81 MG, 1X/DAY
  11. FUROSEMIDE [Concomitant]
     Dosage: 20 MG, UNK

REACTIONS (5)
  - RASH ERYTHEMATOUS [None]
  - PLATELET COUNT INCREASED [None]
  - RESPIRATORY DISORDER [None]
  - GOUT [None]
  - FATIGUE [None]
